FAERS Safety Report 13841365 (Version 1)
Quarter: 2017Q3

REPORT INFORMATION
  Report Type: Spontaneous
  Country: US (occurrence: US)
  Receive Date: 20170807
  Receipt Date: 20170807
  Transmission Date: 20171127
  Serious: Yes (Hospitalization)
  Sender: FDA-Public Use
  Company Number: US-ELI_LILLY_AND_COMPANY-US201707012850

PATIENT
  Sex: Female

DRUGS (3)
  1. HUMALOG [Suspect]
     Active Substance: INSULIN LISPRO
     Indication: TYPE 2 DIABETES MELLITUS
     Dosage: 10 U, PRN
     Route: 058
     Dates: start: 2015
  2. BASAGLAR [Concomitant]
     Active Substance: INSULIN GLARGINE
     Indication: TYPE 2 DIABETES MELLITUS
     Dosage: 85 U, DAILY
     Route: 058
  3. PREDNISONE. [Concomitant]
     Active Substance: PREDNISONE
     Indication: PRODUCT USED FOR UNKNOWN INDICATION
     Dosage: UNK, UNKNOWN
     Route: 065

REACTIONS (7)
  - Hypertension [Recovered/Resolved]
  - Fluid retention [Not Recovered/Not Resolved]
  - Muscle spasms [Not Recovered/Not Resolved]
  - Road traffic accident [Not Recovered/Not Resolved]
  - Weight increased [Not Recovered/Not Resolved]
  - Headache [Recovered/Resolved]
  - Joint injury [Not Recovered/Not Resolved]

NARRATIVE: CASE EVENT DATE: 2015
